FAERS Safety Report 8388112-1 (Version None)
Quarter: 2012Q2

REPORT INFORMATION
  Report Type: 
  Country: None (occurrence: None)
  Receive Date: 20120525
  Receipt Date: 20120514
  Transmission Date: 20120825
  Serious: Yes (Other)
  Sender: FDA-Public Use
  Company Number: US-JNJFOC-20120512782

PATIENT
  Sex: Female
  Weight: 76.2 kg

DRUGS (3)
  1. REMICADE [Suspect]
     Indication: CROHN'S DISEASE
     Route: 042
     Dates: start: 20111201
  2. REMICADE [Suspect]
     Route: 042
     Dates: start: 20100201, end: 20111201
  3. LORTAB [Concomitant]
     Indication: PAIN
     Dosage: 10/500 AS NEEDED
     Route: 048
     Dates: start: 20090101

REACTIONS (3)
  - SEASONAL ALLERGY [None]
  - TOOTHACHE [None]
  - ARTHRITIS [None]
